FAERS Safety Report 16989290 (Version 4)
Quarter: 2020Q1

REPORT INFORMATION
  Report Type: Spontaneous
  Country: US (occurrence: US)
  Receive Date: 20191104
  Receipt Date: 20200323
  Transmission Date: 20200409
  Serious: No
  Sender: FDA-Public Use
  Company Number: US-PFIZER INC-2019473061

PATIENT
  Age: 90 Year
  Sex: Female
  Weight: 84 kg

DRUGS (7)
  1. FUROSEMIDE. [Concomitant]
     Active Substance: FUROSEMIDE
     Dosage: 20 MG, 1X/DAY (20 MG IN THE MORNING )
     Dates: start: 2005
  2. ACARBOSE. [Concomitant]
     Active Substance: ACARBOSE
     Dosage: 25 MG, 3X/DAY
  3. TOVIAZ [Suspect]
     Active Substance: FESOTERODINE FUMARATE
     Dosage: 8 MG, DAILY
     Route: 048
     Dates: start: 20150730
  4. ROSUVASTATIN CALCIUM. [Concomitant]
     Active Substance: ROSUVASTATIN CALCIUM
     Dosage: 10 MG, 1X/DAY
     Dates: start: 2005
  5. OMEPRAZOLE. [Concomitant]
     Active Substance: OMEPRAZOLE
     Dosage: 20 MG, UNK
     Dates: start: 2005
  6. GLIPIZIDE. [Concomitant]
     Active Substance: GLIPIZIDE
     Dosage: 20 MG, DAILY (5 MG, 3 TABLETS IN THE MORNING, 1 IN THE EVENING )
     Dates: start: 2005
  7. TOVIAZ [Suspect]
     Active Substance: FESOTERODINE FUMARATE
     Indication: BLADDER DISORDER
     Dosage: 8 MG, 1X/DAY (EVERY NIGHT)
     Route: 048
     Dates: start: 2016

REACTIONS (3)
  - Hypoacusis [Unknown]
  - Body height decreased [Unknown]
  - Confusional state [Unknown]
